FAERS Safety Report 17345972 (Version 1)
Quarter: 2020Q1

REPORT INFORMATION
  Report Type: Spontaneous
  Country: US (occurrence: US)
  Receive Date: 20200129
  Receipt Date: 20200129
  Transmission Date: 20200409
  Serious: No
  Sender: FDA-Public Use
  Company Number: US-009507513-2001USA005272

PATIENT
  Age: 71 Year
  Sex: Female

DRUGS (1)
  1. INTEGRILIN [Suspect]
     Active Substance: EPTIFIBATIDE
     Indication: CEREBRAL ARTERY OCCLUSION
     Dosage: BOLUS AND DRIP
     Route: 041

REACTIONS (1)
  - Product use in unapproved indication [Unknown]
